FAERS Safety Report 8115600-5 (Version None)
Quarter: 2012Q1

REPORT INFORMATION
  Report Type: 
  Country: None (occurrence: None)
  Receive Date: 20120206
  Receipt Date: 20120127
  Transmission Date: 20120608
  Serious: Yes (Other)
  Sender: FDA-Public Use
  Company Number: US-SANOFI-AVENTIS-2012SA006153

PATIENT
  Age: 66 Year
  Sex: Male

DRUGS (4)
  1. NADOLOL [Concomitant]
  2. MULTAQ [Suspect]
     Indication: ATRIAL FIBRILLATION
     Route: 048
     Dates: start: 20101201
  3. LOSARTAN POTASSIUM [Concomitant]
  4. ALL OTHER THERAPEUTIC PRODUCTS [Concomitant]

REACTIONS (3)
  - CORONARY ARTERY STENOSIS [None]
  - RESPIRATORY TRACT INFECTION [None]
  - DYSPNOEA [None]
